FAERS Safety Report 5476804-3 (Version None)
Quarter: 2007Q4

REPORT INFORMATION
  Report Type: 
  Country: None (occurrence: None)
  Receive Date: 20071003
  Receipt Date: 20071003
  Transmission Date: 20080405
  Serious: No
  Sender: FDA-Public Use
  Company Number: None

PATIENT

DRUGS (2)
  1. VANCOMYCIN [Suspect]
     Indication: EVIDENCE BASED TREATMENT
     Dosage: 250 M/S/1250 MG Q24? IV
     Route: 042
     Dates: start: 20070910, end: 20070910
  2. VANCOMYCIN [Suspect]
     Indication: PNEUMONIA
     Dosage: 250 M/S/1250 MG Q24? IV
     Route: 042
     Dates: start: 20070910, end: 20070910

REACTIONS (3)
  - INFUSION RELATED REACTION [None]
  - PNEUMONIA [None]
  - RED MAN SYNDROME [None]
